FAERS Safety Report 8455410-2 (Version None)
Quarter: 2012Q2

REPORT INFORMATION
  Report Type: 
  Country: None (occurrence: None)
  Receive Date: 20120621
  Receipt Date: 20120615
  Transmission Date: 20120825
  Serious: Yes (Hospitalization)
  Sender: FDA-Public Use
  Company Number: DE-BRISTOL-MYERS SQUIBB COMPANY-16571184

PATIENT
  Sex: Male

DRUGS (1)
  1. REYATAZ [Suspect]
     Dosage: PRIOR TO HOSPITALISATION,RECEIVED

REACTIONS (1)
  - RESPIRATORY DISORDER [None]
